FAERS Safety Report 15606654 (Version 1)
Quarter: 2018Q4

REPORT INFORMATION
  Report Type: Spontaneous
  Country: IT (occurrence: IT)
  Receive Date: 20181112
  Receipt Date: 20181112
  Transmission Date: 20190205
  Serious: Yes (Death, Other)
  Sender: FDA-Public Use
  Company Number: PHHY2018IT145465

PATIENT
  Age: 50 Year
  Sex: Female

DRUGS (3)
  1. OXYCODONE [Concomitant]
     Active Substance: OXYCODONE
     Indication: PRODUCT USED FOR UNKNOWN INDICATION
     Route: 065
  2. LEVOTHYROXINE. [Concomitant]
     Active Substance: LEVOTHYROXINE
     Indication: AUTOIMMUNE THYROIDITIS
     Route: 065
  3. HYDROXYCHLOROQUINE [Suspect]
     Active Substance: HYDROXYCHLOROQUINE
     Indication: MIXED CONNECTIVE TISSUE DISEASE
     Dosage: 200 MG, UNK
     Route: 065

REACTIONS (15)
  - Amnesia [Not Recovered/Not Resolved]
  - Blindness [Unknown]
  - Neurologic neglect syndrome [Not Recovered/Not Resolved]
  - JC virus infection [Unknown]
  - Hemiparesis [Not Recovered/Not Resolved]
  - Visual impairment [Unknown]
  - Dysarthria [Unknown]
  - Product use in unapproved indication [Unknown]
  - Coma [Fatal]
  - Disorientation [Not Recovered/Not Resolved]
  - Impaired driving ability [Unknown]
  - Asthenia [Not Recovered/Not Resolved]
  - Quadriplegia [Unknown]
  - Progressive multifocal leukoencephalopathy [Fatal]
  - Ophthalmoplegia [Not Recovered/Not Resolved]
